FAERS Safety Report 4733030-0 (Version None)
Quarter: 2005Q3

REPORT INFORMATION
  Report Type: 
  Country: None (occurrence: None)
  Receive Date: 20050725
  Receipt Date: 20040720
  Transmission Date: 20060218
  Serious: Yes (Death)
  Sender: FDA-Public Use
  Company Number: USA-2004-0016106

PATIENT
  Age: 47 Year
  Sex: Female
  Weight: 73 kg

DRUGS (10)
  1. MORPHINE SULFATE [Suspect]
  2. DEXTROMETHORPHAN HYDROBROMIDE [Suspect]
  3. NICOTINE [Suspect]
  4. PROMETHAZINE [Suspect]
  5. ALPRAZOLAM [Suspect]
  6. LORAZEPAM [Suspect]
  7. OXAZEPAM [Suspect]
  8. TEMAZEPAM [Suspect]
  9. CARISOPRODOL [Suspect]
  10. CAFFEINE (CAFFEINE) [Suspect]

REACTIONS (2)
  - ACCIDENTAL OVERDOSE [None]
  - MULTIPLE DRUG OVERDOSE [None]
